FAERS Safety Report 9540439 (Version 1)
Quarter: 2013Q3

REPORT INFORMATION
  Report Type: Spontaneous
  Country: FR (occurrence: FR)
  Receive Date: 20130920
  Receipt Date: 20130920
  Transmission Date: 20140515
  Serious: Yes (Life-Threatening, Hospitalization)
  Sender: FDA-Public Use
  Company Number: FR-GLAXOSMITHKLINE-B0922456A

PATIENT
  Age: 48 Year
  Sex: Male

DRUGS (5)
  1. ARIXTRA [Suspect]
     Indication: THROMBOPHLEBITIS
     Route: 058
     Dates: start: 20130729, end: 20130802
  2. DEPAKINE [Concomitant]
  3. ALDACTAZINE [Concomitant]
  4. COSOPT [Concomitant]
  5. XALATAN [Concomitant]

REACTIONS (4)
  - Shock haemorrhagic [Recovered/Resolved with Sequelae]
  - Haematoma [Unknown]
  - Anaemia [Unknown]
  - Skin necrosis [Unknown]
